FAERS Safety Report 11042937 (Version 1)
Quarter: 2015Q2

REPORT INFORMATION
  Report Type: Spontaneous
  Country: PE (occurrence: PE)
  Receive Date: 20150417
  Receipt Date: 20150417
  Transmission Date: 20150821
  Serious: Yes (Other)
  Sender: FDA-Public Use
  Company Number: PE-PFIZER INC-2014315192

PATIENT
  Age: 64 Year
  Sex: Female

DRUGS (2)
  1. TRAMIL /00020001/ [Concomitant]
     Dosage: UNK
     Route: 048
     Dates: start: 2013
  2. LIPITOR [Suspect]
     Active Substance: ATORVASTATIN CALCIUM
     Dosage: UNK
     Route: 048
     Dates: start: 2013, end: 201411

REACTIONS (2)
  - Myalgia [Not Recovered/Not Resolved]
  - CREST syndrome [Not Recovered/Not Resolved]

NARRATIVE: CASE EVENT DATE: 201411
